FAERS Safety Report 9428233 (Version 2)
Quarter: 2013Q4

REPORT INFORMATION
  Report Type: Report from Study
  Country: US (occurrence: US)
  Receive Date: 20130730
  Receipt Date: 20131003
  Transmission Date: 20140711
  Serious: Yes (Hospitalization)
  Sender: FDA-Public Use
  Company Number: US-JNJFOC-20130716803

PATIENT
  Age: 65 Year
  Sex: Male

DRUGS (2)
  1. ZYTIGA [Suspect]
     Indication: PROSTATE CANCER
     Dosage: STRENGTH OF TABLET: 250 MG
     Route: 048
     Dates: start: 20130716, end: 20130726
  2. ZYTIGA [Suspect]
     Indication: PROSTATE CANCER
     Route: 048
     Dates: start: 20130920

REACTIONS (4)
  - Rectal haemorrhage [Unknown]
  - Unevaluable event [Unknown]
  - Off label use [Unknown]
  - Incorrect dose administered [Unknown]
